FAERS Safety Report 6902131-0 (Version None)
Quarter: 2010Q3

REPORT INFORMATION
  Report Type: 
  Country: None (occurrence: None)
  Receive Date: 20100802
  Receipt Date: 20100802
  Transmission Date: 20110219
  Serious: Yes (Hospitalization)
  Sender: FDA-Public Use
  Company Number: None

PATIENT
  Age: 68 Year
  Sex: Male
  Weight: 73.5 kg

DRUGS (1)
  1. ENOXAPARIN SODIUM [Suspect]
     Indication: ATRIAL FIBRILLATION
     Dosage: 60 MG EVERY DAY SQ
     Route: 058
     Dates: start: 20100629, end: 20100719

REACTIONS (5)
  - GAIT DISTURBANCE [None]
  - HAEMATOMA [None]
  - INTERNATIONAL NORMALISED RATIO DECREASED [None]
  - MOTOR DYSFUNCTION [None]
  - SENSATION OF HEAVINESS [None]
